FAERS Safety Report 5796956-5 (Version None)
Quarter: 2008Q2

REPORT INFORMATION
  Report Type: 
  Country: None (occurrence: None)
  Receive Date: 20080618
  Receipt Date: 20070731
  Transmission Date: 20081010
  Serious: Yes (Other)
  Sender: FDA-Public Use
  Company Number: 200712143US

PATIENT
  Age: 64 Year
  Sex: Male

DRUGS (15)
  1. LANTUS [Suspect]
     Indication: DIABETES MELLITUS
     Dosage: 50 U
     Dates: start: 20060201
  2. OPTICLIK GREY [Suspect]
     Indication: DIABETES MELLITUS
     Dates: start: 20060210
  3. APIDRA [Suspect]
     Indication: DIABETES MELLITUS
     Dates: start: 20070301
  4. OPTICLIK [Suspect]
     Indication: DIABETES MELLITUS
     Dates: start: 20070301
  5. HUMALOG [Concomitant]
  6. LASIX [Concomitant]
  7. LIPITOR [Concomitant]
  8. LOPRESSOR [Concomitant]
  9. ZESTRIL [Concomitant]
  10. LYRICA [Concomitant]
  11. PANTOPRAZOLE SODIUM [Concomitant]
  12. DARIFENACIN [Concomitant]
  13. RETINOL [Concomitant]
  14. ASCORBIC ACID (VITAMIN C) [Concomitant]
  15. TOCOPHERYL ACETATE (VITAMIN E) [Concomitant]

REACTIONS (2)
  - HYPERGLYCAEMIA [None]
  - INJECTION SITE BRUISING [None]
